FAERS Safety Report 6217345-5 (Version None)
Quarter: 2009Q2

REPORT INFORMATION
  Report Type: 
  Country: None (occurrence: None)
  Receive Date: 20090608
  Receipt Date: 20090223
  Transmission Date: 20091009
  Serious: No
  Sender: FDA-Public Use
  Company Number: A0722856A

PATIENT
  Age: 29 Year
  Sex: Female
  Weight: 140.9 kg

DRUGS (1)
  1. WELLBUTRIN XL [Suspect]
     Indication: DEPRESSION
     Dosage: 300MG UNKNOWN
     Route: 048
     Dates: start: 20080109

REACTIONS (2)
  - DRUG EXPOSURE DURING PREGNANCY [None]
  - LIVE BIRTH [None]
